FAERS Safety Report 15628953 (Version 4)
Quarter: 2019Q1

REPORT INFORMATION
  Report Type: Report from Study
  Country: US (occurrence: US)
  Receive Date: 20181116
  Receipt Date: 20190201
  Transmission Date: 20190417
  Serious: Yes (Death, Hospitalization, Other)
  Sender: FDA-Public Use
  Company Number: US-GILEAD-2018-0371239

PATIENT
  Age: 84 Year
  Sex: Female
  Weight: 52.15 kg

DRUGS (5)
  1. ELIQUIS [Concomitant]
     Active Substance: APIXABAN
  2. TYVASO [Suspect]
     Active Substance: TREPROSTINIL
     Indication: PULMONARY ARTERIAL HYPERTENSION
     Dosage: 3-9 BREATHS, QID
     Dates: start: 20180823
  3. AMBRISENTAN [Suspect]
     Active Substance: AMBRISENTAN
     Indication: PULMONARY ARTERIAL HYPERTENSION
     Dosage: 5 MG, QD
     Route: 065
     Dates: start: 20180809
  4. ADEMPAS [Concomitant]
     Active Substance: RIOCIGUAT
  5. XARELTO [Concomitant]
     Active Substance: RIVAROXABAN

REACTIONS (10)
  - Failure to thrive [Not Recovered/Not Resolved]
  - Cardiac disorder [Not Recovered/Not Resolved]
  - Cystitis [Unknown]
  - Urinary tract infection [Not Recovered/Not Resolved]
  - Hypotension [Unknown]
  - Intentional product use issue [Not Recovered/Not Resolved]
  - Pneumonia [Not Recovered/Not Resolved]
  - Pulmonary arterial hypertension [Fatal]
  - Weight decreased [Not Recovered/Not Resolved]
  - Asthenia [Not Recovered/Not Resolved]
